FAERS Safety Report 11988036 (Version 1)
Quarter: 2016Q1

REPORT INFORMATION
  Report Type: Spontaneous
  Country: US (occurrence: US)
  Receive Date: 20160202
  Receipt Date: 20160202
  Transmission Date: 20160526
  Serious: No
  Sender: FDA-Public Use
  Company Number: US-MYLANLABS-2015M1038260

PATIENT
  Age: 27 Year
  Sex: Female
  Weight: 66.67 kg

DRUGS (1)
  1. AUBRA [Suspect]
     Active Substance: ETHINYL ESTRADIOL\LEVONORGESTREL
     Dosage: 0.1MG/0.02MG QD
     Route: 048
     Dates: start: 201507

REACTIONS (1)
  - Menstrual disorder [Not Recovered/Not Resolved]

NARRATIVE: CASE EVENT DATE: 201510
